FAERS Safety Report 11418142 (Version 1)
Quarter: 2015Q3

REPORT INFORMATION
  Report Type: Report from Study
  Country: JP (occurrence: JP)
  Receive Date: 20150825
  Receipt Date: 20150825
  Transmission Date: 20151125
  Serious: Yes (Other)
  Sender: FDA-Public Use
  Company Number: JP-009507513-1508JPN010375

PATIENT

DRUGS (2)
  1. PEGINTERFERON ALFA-2B [Suspect]
     Active Substance: PEGINTERFERON ALFA-2B
     Indication: CHRONIC HEPATITIS C
     Dosage: UNK, QW
  2. RIBAVIRIN. [Suspect]
     Active Substance: RIBAVIRIN
     Indication: CHRONIC HEPATITIS C
     Dosage: UNK, QD

REACTIONS (12)
  - Decreased appetite [Unknown]
  - Anaemia [Unknown]
  - Diabetes mellitus [Unknown]
  - Rash [Unknown]
  - Stevens-Johnson syndrome [Unknown]
  - Cerebral haemorrhage [Unknown]
  - Retinopathy [Unknown]
  - Pneumonia [Unknown]
  - Chest pain [Unknown]
  - Malaise [Unknown]
  - Interstitial lung disease [Unknown]
  - Neuropsychiatric syndrome [Unknown]
